FAERS Safety Report 24397033 (Version 2)
Quarter: 2024Q4

REPORT INFORMATION
  Report Type: Spontaneous
  Country: US (occurrence: US)
  Receive Date: 20241004
  Receipt Date: 20241010
  Transmission Date: 20250115
  Serious: Yes (Life-Threatening, Hospitalization, Other)
  Sender: DR REDDYS
  Company Number: None

PATIENT
  Age: 34 Year
  Sex: Female
  Weight: 61 kg

DRUGS (6)
  1. DOXORUBICIN [Suspect]
     Active Substance: DOXORUBICIN
     Indication: Invasive ductal breast carcinoma
     Dosage: FIRST CYCLE [100 MG EVERY 3 WEEKS WAS ADMINISTERED INTRAVENOUSLY]
     Route: 042
  2. DOXORUBICIN [Suspect]
     Active Substance: DOXORUBICIN
     Indication: Metastases to lymph nodes
  3. DOXORUBICIN [Suspect]
     Active Substance: DOXORUBICIN
     Indication: Metastases to bone
  4. CYCLOPHOSPHAMIDE [Suspect]
     Active Substance: CYCLOPHOSPHAMIDE
     Indication: Metastases to bone
     Dosage: FIRST CYCLE [1,000 MG EVERY 3 WEEKS WAS ADMINISTERED INTRAVENOUSLY]
     Route: 042
  5. CYCLOPHOSPHAMIDE [Suspect]
     Active Substance: CYCLOPHOSPHAMIDE
     Indication: Metastases to lymph nodes
  6. CYCLOPHOSPHAMIDE [Suspect]
     Active Substance: CYCLOPHOSPHAMIDE
     Indication: Invasive ductal breast carcinoma

REACTIONS (3)
  - Ventricular tachycardia [Recovered/Resolved]
  - Ventricular extrasystoles [Recovered/Resolved]
  - Sinus tachycardia [Recovered/Resolved]
